FAERS Safety Report 9238314 (Version 1)
Quarter: 2013Q2

REPORT INFORMATION
  Report Type: Spontaneous
  Country: US (occurrence: US)
  Receive Date: 20130418
  Receipt Date: 20130418
  Transmission Date: 20140414
  Serious: Yes (Hospitalization, Other)
  Sender: FDA-Public Use
  Company Number: PHEH2013US008367

PATIENT
  Sex: Female

DRUGS (12)
  1. RECLAST [Suspect]
     Dosage: UNK
     Route: 042
     Dates: start: 2003
  2. RECLAST [Suspect]
     Dosage: UNK
     Route: 042
     Dates: start: 20120218
  3. ALTACE [Concomitant]
     Dosage: 5 MG, QD
  4. CLONAZEPAM [Concomitant]
     Dosage: 0.5 MG, QD
  5. CLOPIDOGREL [Concomitant]
     Dosage: 4 MG, PRN
  6. SINGULAIR [Concomitant]
     Dosage: UNK
  7. PYRIDIUM [Concomitant]
     Dosage: 200 MG, UNK
  8. ALBUTEROL [Concomitant]
     Dosage: UNK
  9. FLONASE [Concomitant]
     Dosage: 50 UG, PRN
  10. B12 [Concomitant]
     Dosage: UNK UKN, BIW
  11. ROBAXIN [Concomitant]
     Dosage: UNK
  12. TRAMADOL [Concomitant]
     Dosage: 50 MG

REACTIONS (5)
  - Cardiac disorder [Unknown]
  - Cerebrovascular accident [Unknown]
  - Diplopia [Recovering/Resolving]
  - Chest pain [Unknown]
  - Incorrect drug administration rate [Unknown]
